FAERS Safety Report 6935844-5 (Version None)
Quarter: 2010Q3

REPORT INFORMATION
  Report Type: 
  Country: None (occurrence: None)
  Receive Date: 20100816
  Receipt Date: 20090623
  Transmission Date: 20110219
  Serious: No
  Sender: FDA-Public Use
  Company Number: 2009-00163

PATIENT
  Age: 61 Year
  Sex: Female
  Weight: 49.8957 kg

DRUGS (4)
  1. ZICAM COLD REMEDY NASAL GEL [Suspect]
     Dosage: SPORADIC
     Dates: start: 20040101
  2. ZICAM COLD REMEDY NASAL GEL [Suspect]
     Dosage: SPORADIC
     Dates: start: 20040101
  3. ZYRTEC [Concomitant]
  4. NASONEX [Concomitant]

REACTIONS (2)
  - ANOSMIA [None]
  - BURNING SENSATION [None]
